FAERS Safety Report 10525339 (Version 1)
Quarter: 2014Q4

REPORT INFORMATION
  Report Type: Spontaneous
  Country: US (occurrence: None)
  Receive Date: 20141015
  Receipt Date: 20141015
  Transmission Date: 20150528
  Serious: No
  Sender: FDA-Public Use
  Company Number: None

PATIENT
  Age: 56 Year
  Sex: Female
  Weight: 83.92 kg

DRUGS (1)
  1. PREDNISONE. [Suspect]
     Active Substance: PREDNISONE
     Indication: MULTIPLE ALLERGIES
     Dosage: 4-3-2-1?ONCE DAILY?ORAL
     Route: 048
     Dates: start: 20141011, end: 20141012

REACTIONS (4)
  - Headache [None]
  - Pain [None]
  - Anxiety [None]
  - Muscle tightness [None]

NARRATIVE: CASE EVENT DATE: 20141011
